FAERS Safety Report 24667548 (Version 2)
Quarter: 2024Q4

REPORT INFORMATION
  Report Type: Spontaneous
  Country: PL (occurrence: PL)
  Receive Date: 20241126
  Receipt Date: 20241202
  Transmission Date: 20250114
  Serious: Yes (Other)
  Sender: AMGEN
  Company Number: PL-AMGEN-POLSP2024229599

PATIENT
  Age: 61 Year
  Sex: Male

DRUGS (2)
  1. LUMAKRAS [Suspect]
     Active Substance: SOTORASIB
     Indication: Non-small cell lung cancer
     Dosage: UNK
     Route: 065
     Dates: start: 202401, end: 202410
  2. LUMAKRAS [Suspect]
     Active Substance: SOTORASIB
     Indication: K-ras gene mutation

REACTIONS (1)
  - Non-small cell lung cancer [Unknown]

NARRATIVE: CASE EVENT DATE: 20240101
